FAERS Safety Report 5822360-7 (Version None)
Quarter: 2008Q3

REPORT INFORMATION
  Report Type: 
  Country: None (occurrence: None)
  Receive Date: 20080722
  Receipt Date: 20080709
  Transmission Date: 20090109
  Serious: Yes (Other)
  Sender: FDA-Public Use
  Company Number: 107#08#2008-03353

PATIENT
  Age: 95 Year
  Sex: Female

DRUGS (4)
  1. AMIODARONE HCL [Suspect]
     Indication: ATRIAL FIBRILLATION
     Dosage: SEE IMAGE
  2. THYROXINE (THYROXINE) [Concomitant]
  3. BUMETANIDE [Concomitant]
  4. WARFARIN SODIUM [Concomitant]

REACTIONS (6)
  - ATAXIA [None]
  - CEREBELLAR SYNDROME [None]
  - GAIT DISTURBANCE [None]
  - HYPOTHYROIDISM [None]
  - NYSTAGMUS [None]
  - SENSORY DISTURBANCE [None]
